FAERS Safety Report 5248134-6 (Version None)
Quarter: 2007Q1

REPORT INFORMATION
  Report Type: 
  Country: None (occurrence: None)
  Receive Date: 20070227
  Receipt Date: 20060210
  Transmission Date: 20070707
  Serious: No
  Sender: FDA-Public Use
  Company Number: US-BRISTOL-MYERS SQUIBB COMPANY-13279807

PATIENT
  Age: 62 Year
  Sex: Female
  Weight: 113 kg

DRUGS (11)
  1. GLUCOPHAGE [Suspect]
     Indication: DIABETES MELLITUS
     Dosage: 500MG OD INC. TO 500MG TWICE DAILY ABOUT 2 YR AGO, INC. TO 2000MG, 500MG, 2 TAB AM, 2 TAB IN PM.
  2. VYTORIN [Concomitant]
  3. BETAPACE [Concomitant]
  4. HYZAAR [Concomitant]
  5. TRICOR [Concomitant]
  6. KLOR-CON M [Concomitant]
  7. K-DUR 10 [Concomitant]
  8. LASIX [Concomitant]
  9. COUMADIN [Concomitant]
  10. XANAX [Concomitant]
  11. MULTI-VITAMIN [Concomitant]

REACTIONS (4)
  - BLOOD GLUCOSE INCREASED [None]
  - HEADACHE [None]
  - NEUROPATHY [None]
  - SINUSITIS [None]
